FAERS Safety Report 9222837 (Version 2)
Quarter: 2013Q2

REPORT INFORMATION
  Report Type: Spontaneous
  Country: ZA (occurrence: ZA)
  Receive Date: 20130410
  Receipt Date: 20130419
  Transmission Date: 20140414
  Serious: Yes (Hospitalization)
  Sender: FDA-Public Use
  Company Number: ZA-PFIZER INC-2013111306

PATIENT
  Age: 71 Month
  Sex: Female

DRUGS (12)
  1. LINEZOLID [Suspect]
     Indication: TUBERCULOSIS
     Dosage: 300 MG, DAILY
     Route: 065
  2. AMOXICILLIN TRIHYDRATE/CLAVULANATE POTASSIUM [Suspect]
     Indication: TUBERCULOSIS
     Dosage: UNK
     Route: 065
  3. CLARITHROMYCIN [Suspect]
     Indication: TUBERCULOSIS
     Dosage: UNK
     Route: 065
  4. CAPREOMYCIN [Suspect]
     Indication: TUBERCULOSIS
     Dosage: UNK
     Route: 065
  5. TERIZIDONE [Suspect]
     Indication: TUBERCULOSIS
     Dosage: UNK
     Route: 065
  6. PARA-AMINOSALICYLIC ACID [Suspect]
     Indication: TUBERCULOSIS
     Dosage: UNK
     Route: 065
  7. MOXIFLOXACIN [Suspect]
     Indication: TUBERCULOSIS
     Dosage: UNK
     Route: 065
  8. CLOFAZIMINE [Suspect]
     Indication: TUBERCULOSIS
     Dosage: UNK
     Route: 065
  9. ABACAVIR [Suspect]
     Indication: ANTIRETROVIRAL THERAPY
  10. LAMIVUDINE [Suspect]
     Indication: ANTIRETROVIRAL THERAPY
  11. EFAVIRENZ [Suspect]
     Indication: ANTIRETROVIRAL THERAPY
  12. PYRIDOXINE [Concomitant]
     Indication: NEUROPATHY PERIPHERAL

REACTIONS (2)
  - Pancreatitis [Recovered/Resolved]
  - Lactic acidosis [Recovered/Resolved]
